FAERS Safety Report 8172292-7 (Version None)
Quarter: 2012Q1

REPORT INFORMATION
  Report Type: 
  Country: None (occurrence: None)
  Receive Date: 20120229
  Receipt Date: 20120220
  Transmission Date: 20120608
  Serious: No
  Sender: FDA-Public Use
  Company Number: US-BIOGENIDEC-2012BI006371

PATIENT
  Age: 58 Year
  Sex: Male

DRUGS (1)
  1. TYSABRI [Suspect]
     Indication: MULTIPLE SCLEROSIS
     Route: 042
     Dates: start: 20110606

REACTIONS (5)
  - NERVE COMPRESSION [None]
  - ORAL PAIN [None]
  - TOOTH DISORDER [None]
  - APHASIA [None]
  - MOUTH ULCERATION [None]
